FAERS Safety Report 13121779 (Version 1)
Quarter: 2017Q1

REPORT INFORMATION
  Report Type: Spontaneous
  Country: US (occurrence: US)
  Receive Date: 20170116
  Receipt Date: 20170116
  Transmission Date: 20170428
  Serious: No
  Sender: FDA-Public Use
  Company Number: None

PATIENT
  Age: 48 Year
  Sex: Male
  Weight: 65 kg

DRUGS (9)
  1. NEUROBIAN [Concomitant]
  2. FOSAVANCE [Concomitant]
     Active Substance: ALENDRONATE SODIUM\CHOLECALCIFEROL
  3. CALCIUM EFFERVESCENT [Concomitant]
  4. BIOGEN PRE + PRO BIOTICS [Concomitant]
  5. PRADAXA [Suspect]
     Active Substance: DABIGATRAN ETEXILATE MESYLATE
     Indication: THROMBOSIS
     Route: 048
     Dates: start: 20160930
  6. ZYTOMIL [Concomitant]
  7. FOLIC ACID. [Concomitant]
     Active Substance: FOLIC ACID
  8. ALDACTONE [Concomitant]
     Active Substance: SPIRONOLACTONE
  9. VITAMIN B COMPLEX [Concomitant]
     Active Substance: CYANOCOBALAMIN\DEXPANTHENOL\NIACINAMIDE\PYRIDOXINE HYDROCHLORIDE\RIBOFLAVIN 5^-PHOSPHATE SODIUM\THIAMINE HYDROCHLORIDE\VITAMIN B COMPLEX

REACTIONS (5)
  - Abnormal behaviour [None]
  - Bruxism [None]
  - Eating disorder [None]
  - Jaw disorder [None]
  - Pruritus generalised [None]

NARRATIVE: CASE EVENT DATE: 20170116
